FAERS Safety Report 12945977 (Version 5)
Quarter: 2017Q1

REPORT INFORMATION
  Report Type: Spontaneous
  Country: US (occurrence: US)
  Receive Date: 20161115
  Receipt Date: 20170306
  Transmission Date: 20170428
  Serious: Yes (Hospitalization)
  Sender: FDA-Public Use
  Company Number: US-ACTELION-A-US2016-145270

PATIENT
  Age: 6 Year
  Sex: Female
  Weight: 28.57 kg

DRUGS (18)
  1. TRACLEER [Suspect]
     Active Substance: BOSENTAN
     Indication: PULMONARY HYPERTENSION
     Dosage: 31.25 MG, BID
     Route: 048
     Dates: start: 20160825
  2. LASIX [Concomitant]
     Active Substance: FUROSEMIDE
     Dosage: 10 MG, BID
     Route: 048
  3. LACOSAMIDE. [Concomitant]
     Active Substance: LACOSAMIDE
     Dosage: 31.25 MG, BID
     Route: 048
  4. IBUPROFEN. [Concomitant]
     Active Substance: IBUPROFEN
     Dosage: 250 MG, TID
  5. TRAMADOL. [Concomitant]
     Active Substance: TRAMADOL
     Dosage: 25 MG, PRN
  6. LACOSAMIDE. [Concomitant]
     Active Substance: LACOSAMIDE
     Dosage: 75 MG, BID
     Route: 048
  7. PREDNISOLONE. [Concomitant]
     Active Substance: PREDNISOLONE
     Dosage: 30 MG AM AND 15 MG PM
  8. ZANTAC [Concomitant]
     Active Substance: RANITIDINE HYDROCHLORIDE
     Dosage: 75 MG, BID
     Route: 048
  9. REMODULIN [Concomitant]
     Active Substance: TREPROSTINIL
     Dosage: 80 NG/KG, PER MIN
  10. ADCIRCA [Concomitant]
     Active Substance: TADALAFIL
     Dosage: 37.5 MG, QD
  11. RANITIDINE. [Concomitant]
     Active Substance: RANITIDINE
     Dosage: 100 MG, BID
     Route: 048
  12. ZANTAC [Concomitant]
     Active Substance: RANITIDINE HYDROCHLORIDE
     Dosage: 100.5 MG, BID
  13. REMODULIN [Concomitant]
     Active Substance: TREPROSTINIL
     Dosage: 50 NG/KG, PER MIN
  14. ADCIRCA [Concomitant]
     Active Substance: TADALAFIL
     Dosage: 7.5 MG, QD
  15. ALBUTEROL. [Concomitant]
     Active Substance: ALBUTEROL
  16. ASPIRIN. [Concomitant]
     Active Substance: ASPIRIN
     Dosage: 40.5 MG, QD
     Route: 048
  17. IRON [Concomitant]
     Active Substance: IRON
  18. LANSOPRAZOLE. [Concomitant]
     Active Substance: LANSOPRAZOLE
     Dosage: 15 MG, BID

REACTIONS (15)
  - Diarrhoea [Unknown]
  - Arthralgia [Recovering/Resolving]
  - Pyrexia [Unknown]
  - Cough [Recovering/Resolving]
  - Transaminases increased [Recovering/Resolving]
  - Gastrointestinal infection [Unknown]
  - Enterovirus infection [Recovering/Resolving]
  - Rhinovirus infection [Recovering/Resolving]
  - Joint swelling [Recovering/Resolving]
  - Juvenile idiopathic arthritis [Recovering/Resolving]
  - Back pain [Recovering/Resolving]
  - Pain in extremity [Recovering/Resolving]
  - Clostridium difficile infection [Recovered/Resolved]
  - Haematochezia [Recovered/Resolved]
  - Abdominal distension [Recovering/Resolving]

NARRATIVE: CASE EVENT DATE: 20161117
